FAERS Safety Report 9441143 (Version 1)
Quarter: 2013Q3

REPORT INFORMATION
  Report Type: Spontaneous
  Country: ES (occurrence: ES)
  Receive Date: 20130805
  Receipt Date: 20130805
  Transmission Date: 20140515
  Serious: Yes (Hospitalization)
  Sender: FDA-Public Use
  Company Number: ES-VERTEX PHARMACEUTICALS INC-2013-008507

PATIENT
  Age: 63 Year
  Sex: Female
  Weight: 70 kg

DRUGS (4)
  1. INCIVO [Suspect]
     Indication: CHRONIC HEPATITIS C
     Dosage: 2.25 G, QD, TABLET
     Route: 048
     Dates: start: 20130322, end: 20130611
  2. REBETOL [Concomitant]
     Indication: CHRONIC HEPATITIS C
     Dosage: DOSAGE FORM: UNKNOWN
     Route: 048
     Dates: start: 20130322, end: 20130618
  3. PEGASYS [Concomitant]
     Indication: CHRONIC HEPATITIS C
     Dosage: DOSAGE FORM: UNSPECIFIED
     Route: 058
     Dates: start: 20130322, end: 20130614
  4. BINOCRIT [Concomitant]
     Indication: ANAEMIA
     Dosage: 30 KIU, QW
     Route: 058
     Dates: start: 20130419, end: 20130530

REACTIONS (5)
  - Skin haemorrhage [Recovered/Resolved]
  - Renal failure [Recovered/Resolved]
  - Pyrexia [Unknown]
  - Anaemia [Unknown]
  - Rash [Recovered/Resolved]
